FAERS Safety Report 13013470 (Version 3)
Quarter: 2016Q4

REPORT INFORMATION
  Report Type: Spontaneous
  Country: CH (occurrence: ES)
  Receive Date: 20161209
  Receipt Date: 20161223
  Transmission Date: 20170207
  Serious: Yes (Life-Threatening)
  Sender: FDA-Public Use
  Company Number: CH-LPDUSPRD-20161097

PATIENT
  Age: 41 Year
  Sex: Female

DRUGS (3)
  1. FERINJECT [Suspect]
     Active Substance: FERRIC CARBOXYMALTOSE
     Dosage: 500 MG IN 100 ML UNK SOLUTION
     Route: 041
     Dates: start: 20160831, end: 20161017
  2. URBASON [Concomitant]
     Active Substance: METHYLPREDNISOLONE
     Dosage: UNKNOWN
     Dates: start: 20161017, end: 20161017
  3. POLARAMINE [Suspect]
     Active Substance: DEXCHLORPHENIRAMINE MALEATE
     Dosage: UNKNOWN
     Dates: start: 20161017, end: 20161017

REACTIONS (7)
  - Discomfort [Recovered/Resolved with Sequelae]
  - Chest discomfort [Unknown]
  - Loss of consciousness [Unknown]
  - Incorrect drug administration rate [Unknown]
  - Bradycardia [Unknown]
  - Dyspnoea [Unknown]
  - Syncope [Unknown]

NARRATIVE: CASE EVENT DATE: 20160831
